FAERS Safety Report 5928772-5 (Version None)
Quarter: 2008Q4

REPORT INFORMATION
  Report Type: 
  Country: None (occurrence: None)
  Receive Date: 20081023
  Receipt Date: 20081023
  Transmission Date: 20090506
  Serious: Yes (Other)
  Sender: FDA-Public Use
  Company Number: None

PATIENT
  Age: 56 Year
  Sex: Female
  Weight: 44 kg

DRUGS (1)
  1. METHYLPREDNISOLONE ACETATE [Suspect]
     Indication: SPINAL DECOMPRESSION
     Dosage: 80 MG ONCE IV BOLUS
     Route: 040
     Dates: start: 20081006, end: 20081006

REACTIONS (2)
  - MEDICATION ERROR [None]
  - WRONG DRUG ADMINISTERED [None]
